FAERS Safety Report 4511390-3 (Version None)
Quarter: 2004Q4

REPORT INFORMATION
  Report Type: 
  Country: None (occurrence: None)
  Receive Date: 20041123
  Receipt Date: 20041123
  Transmission Date: 20050328
  Serious: Yes (Hospitalization)
  Sender: FDA-Public Use
  Company Number: None

PATIENT
  Age: 41 Year
  Sex: Male

DRUGS (9)
  1. ENFUVIRTIDE [Suspect]
     Indication: ACQUIRED IMMUNODEFICIENCY SYNDROME
     Dosage: 90 MG BID SUBCUTANEOUS
     Route: 058
     Dates: start: 20040218, end: 20040315
  2. ENFUVIRTIDE [Suspect]
     Indication: HIV INFECTION
     Dosage: 90 MG BID SUBCUTANEOUS
     Route: 058
     Dates: start: 20040218, end: 20040315
  3. KALETRA [Concomitant]
  4. COMBIVIR [Concomitant]
  5. WARFARIN SODIUM [Concomitant]
  6. TOLTERODINE LA [Concomitant]
  7. RITONAVIR [Concomitant]
  8. ESOMEPRAZOLE [Concomitant]
  9. SEPTRA DS [Concomitant]

REACTIONS (1)
  - PAIN IN EXTREMITY [None]
